FAERS Safety Report 12227915 (Version 1)
Quarter: 2016Q2

REPORT INFORMATION
  Report Type: Spontaneous
  Country: CH (occurrence: CH)
  Receive Date: 20160401
  Receipt Date: 20160401
  Transmission Date: 20160815
  Serious: Yes (Other)
  Sender: FDA-Public Use
  Company Number: CH-009507513-1603CHE012337

PATIENT
  Age: 75 Year
  Sex: Male

DRUGS (1)
  1. BETAMETHASONE ACETATE (+) BETAMETHASONE SODIUM PHOSPHATE [Suspect]
     Active Substance: BETAMETHASONE ACETATE\BETAMETHASONE SODIUM PHOSPHATE
     Indication: UVEITIS
     Dosage: PERIBULLBAR INJECTION

REACTIONS (1)
  - Blindness [Unknown]
